FAERS Safety Report 6854951-9 (Version None)
Quarter: 2010Q3

REPORT INFORMATION
  Report Type: 
  Country: None (occurrence: None)
  Receive Date: 20100717
  Receipt Date: 20080304
  Transmission Date: 20110219
  Serious: No
  Sender: FDA-Public Use
  Company Number: US-PFIZER INC-2008002253

PATIENT
  Sex: Female
  Weight: 100 kg

DRUGS (3)
  1. CHANTIX [Suspect]
     Indication: SMOKING CESSATION THERAPY
     Dates: start: 20071227, end: 20080102
  2. GLUCOTROL [Concomitant]
  3. GLUCOPHAGE [Concomitant]

REACTIONS (2)
  - ANGER [None]
  - INSOMNIA [None]
